FAERS Safety Report 13873741 (Version 1)
Quarter: 2017Q3

REPORT INFORMATION
  Report Type: Spontaneous
  Country: FR (occurrence: FR)
  Receive Date: 20170816
  Receipt Date: 20170816
  Transmission Date: 20171127
  Serious: Yes (Hospitalization)
  Sender: FDA-Public Use
  Company Number: PHHY2017FR118757

PATIENT
  Age: 30 Year
  Sex: Male

DRUGS (7)
  1. TRILEPTAL [Suspect]
     Active Substance: OXCARBAZEPINE
     Dosage: 2100 MG, QD (14 TABLETS OF 150 MG TAKEN AS 5 IN MORNING, 5 AT NOON AND 4 IN EVENING)
     Route: 048
     Dates: start: 20170713
  2. ANAFRANIL [Suspect]
     Active Substance: CLOMIPRAMINE HYDROCHLORIDE
     Dosage: 5 DOSAGE FORMS IN THE MORNING, 4 DOSAGE FORMS AT NOON AND 5 DOSAGE FORMS IN THE EVENING
     Route: 048
  3. TRILEPTAL [Suspect]
     Active Substance: OXCARBAZEPINE
     Dosage: 1800 MG, QD (150 MG WITH FOUR TABLETS IN THE MORNING, AT NOON AND IN THE EVENING)
     Route: 048
  4. TRILEPTAL [Suspect]
     Active Substance: OXCARBAZEPINE
     Dosage: 1500 MG, QD
     Route: 048
  5. TRILEPTAL [Suspect]
     Active Substance: OXCARBAZEPINE
     Dosage: 1600 MG, QD
     Route: 048
  6. ANAFRANIL [Suspect]
     Active Substance: CLOMIPRAMINE HYDROCHLORIDE
     Indication: NEURALGIA
     Dosage: 75 MG, QD (50 MG IN THE MORNING AND 25 MG AT NOON)
     Route: 048
     Dates: start: 20170713
  7. TRILEPTAL [Suspect]
     Active Substance: OXCARBAZEPINE
     Indication: NEURALGIA
     Dosage: 2100 MG, QD
     Route: 048
     Dates: start: 20161207

REACTIONS (2)
  - Diplopia [Recovered/Resolved]
  - Hallucination [Recovered/Resolved]

NARRATIVE: CASE EVENT DATE: 20170725
